FAERS Safety Report 16587740 (Version 4)
Quarter: 2019Q3

REPORT INFORMATION
  Report Type: Spontaneous
  Country: FR (occurrence: FR)
  Receive Date: 20190717
  Receipt Date: 20190906
  Transmission Date: 20191004
  Serious: Yes (Hospitalization)
  Sender: FDA-Public Use
  Company Number: FR-JNJFOC-20190713217

PATIENT
  Age: 25 Day
  Sex: Male

DRUGS (5)
  1. TOPIRAMATE. [Suspect]
     Active Substance: TOPIRAMATE
     Indication: PRODUCT USED FOR UNKNOWN INDICATION
     Dosage: MATERNAL DOSE: 200 MG QD
     Route: 063
  2. LEVETIRACETAM. [Suspect]
     Active Substance: LEVETIRACETAM
     Dosage: MATERNAL DOSE: 3000 MG QD
     Route: 063
  3. TOPIRAMATE. [Suspect]
     Active Substance: TOPIRAMATE
     Dosage: MATERNAL DOSE: 200 MG QD
     Route: 064
  4. LEVETIRACETAM. [Suspect]
     Active Substance: LEVETIRACETAM
     Indication: PRODUCT USED FOR UNKNOWN INDICATION
     Dosage: MATERNAL DOSE: 3000 MG QD
     Route: 064
  5. CLOBAZAM. [Concomitant]
     Active Substance: CLOBAZAM
     Route: 065

REACTIONS (5)
  - Sedation [Recovering/Resolving]
  - Vomiting [Recovering/Resolving]
  - Foetal exposure during pregnancy [Recovered/Resolved]
  - Weight decreased [Recovering/Resolving]
  - Exposure via breast milk [Recovered/Resolved]
